FAERS Safety Report 9299141 (Version 1)
Quarter: 2013Q2

REPORT INFORMATION
  Report Type: Spontaneous
  Country: VE (occurrence: VE)
  Receive Date: 20130520
  Receipt Date: 20130520
  Transmission Date: 20140414
  Serious: Yes (Hospitalization)
  Sender: FDA-Public Use
  Company Number: VE-PFIZER INC-2013154069

PATIENT
  Age: 64 Year
  Sex: Male

DRUGS (1)
  1. LIPITOR [Suspect]
     Dosage: 40 MG, 1X/DAY
     Dates: start: 2013

REACTIONS (2)
  - Rhinitis [Not Recovered/Not Resolved]
  - Rhinalgia [Not Recovered/Not Resolved]
